FAERS Safety Report 8977351 (Version 1)
Quarter: 2012Q4

REPORT INFORMATION
  Report Type: Report from Study
  Country: NL (occurrence: NL)
  Receive Date: 20121220
  Receipt Date: 20121220
  Transmission Date: 20130627
  Serious: Yes (Hospitalization, Other)
  Sender: FDA-Public Use
  Company Number: NL-BAXTER-2012BAX027325

PATIENT
  Age: 73 Year
  Sex: Female

DRUGS (9)
  1. ENDOXAN I.V., POEDER VOOR OPLOSSING VOOR INJECTIE 200, 500, 1000 MG [Suspect]
     Indication: DIFFUSE LARGE B-CELL LYMPHOMA
     Route: 042
     Dates: start: 20081111, end: 20090109
  2. RITUXIMAB [Suspect]
     Indication: DIFFUSE LARGE B-CELL LYMPHOMA
     Route: 042
     Dates: start: 20081111, end: 20090109
  3. RITUXIMAB [Suspect]
     Route: 042
     Dates: start: 20090109
  4. PREDNISONE [Suspect]
     Indication: DIFFUSE LARGE B-CELL LYMPHOMA
     Route: 048
     Dates: start: 20081106, end: 20090109
  5. PREDNISONE [Suspect]
     Route: 048
     Dates: start: 20090109
  6. DOXORUBICIN [Suspect]
     Indication: DIFFUSE LARGE B-CELL LYMPHOMA
     Route: 042
     Dates: start: 20081111, end: 20090109
  7. DOXORUBICIN [Suspect]
     Route: 042
     Dates: start: 20090109
  8. VINCRISTINE [Suspect]
     Indication: DIFFUSE LARGE B-CELL LYMPHOMA
     Route: 042
     Dates: start: 20081111, end: 20081125
  9. G-CSF [Suspect]
     Indication: DIFFUSE LARGE B-CELL LYMPHOMA
     Route: 058
     Dates: start: 20081112

REACTIONS (3)
  - Pyrexia [Unknown]
  - Hyponatraemia [Unknown]
  - Bacteraemia [Unknown]
